FAERS Safety Report 9719210 (Version 1)
Quarter: 2013Q4

REPORT INFORMATION
  Report Type: Report from Study
  Country: BR (occurrence: BR)
  Receive Date: 20131127
  Receipt Date: 20131127
  Transmission Date: 20140711
  Serious: Yes (Other)
  Sender: FDA-Public Use
  Company Number: PHHY2013BR135247

PATIENT
  Sex: Female
  Weight: 69 kg

DRUGS (5)
  1. CATAFLAM [Suspect]
     Indication: TENDONITIS
     Dosage: 11.6 MG, 3 TO 4 TIMES DAILY
     Route: 061
  2. CATAFLAM [Suspect]
     Indication: RENAL PAIN
  3. MICARDIS [Suspect]
     Indication: HYPERTENSION
     Dosage: 8 MG, UNK
  4. METFORMIN [Concomitant]
     Indication: DIABETES MELLITUS
     Dosage: UNK UKN, UNK
  5. PRESSAT [Concomitant]
     Indication: HYPERTENSION
     Dosage: UNK UKN, UNK

REACTIONS (2)
  - Meniscus injury [Recovering/Resolving]
  - Renal disorder [Recovering/Resolving]
